FAERS Safety Report 22610384 (Version 2)
Quarter: 2023Q2

REPORT INFORMATION
  Report Type: Spontaneous
  Country: AT (occurrence: AT)
  Receive Date: 20230616
  Receipt Date: 20230626
  Transmission Date: 20230722
  Serious: Yes (Death)
  Sender: FDA-Public Use
  Company Number: AT-DSJP-DSE-2023-124152

PATIENT
  Age: 50 Year
  Sex: Male
  Weight: 69 kg

DRUGS (1)
  1. ENHERTU [Suspect]
     Active Substance: FAM-TRASTUZUMAB DERUXTECAN-NXKI
     Indication: Cholangiocarcinoma
     Dosage: 6.4 MG/KG, CYCLIC
     Route: 065
     Dates: start: 20230524

REACTIONS (2)
  - Death [Fatal]
  - Off label use [Unknown]

NARRATIVE: CASE EVENT DATE: 20230524
